FAERS Safety Report 18155213 (Version 1)
Quarter: 2020Q3

REPORT INFORMATION
  Report Type: Spontaneous
  Country: US (occurrence: US)
  Receive Date: 20200817
  Receipt Date: 20200817
  Transmission Date: 20201103
  Serious: No
  Sender: FDA-Public Use
  Company Number: US-ALLERGAN-2001076US

PATIENT
  Sex: Male

DRUGS (1)
  1. TESTOSTERONE UNK [Suspect]
     Active Substance: TESTOSTERONE
     Indication: HYPOGONADISM
     Dosage: UNK

REACTIONS (2)
  - Drug ineffective [Unknown]
  - Malabsorption from application site [Unknown]
